FAERS Safety Report 18729808 (Version 1)
Quarter: 2021Q1

REPORT INFORMATION
  Report Type: Spontaneous
  Country: US (occurrence: US)
  Receive Date: 20210112
  Receipt Date: 20210112
  Transmission Date: 20210419
  Serious: Yes (Hospitalization)
  Sender: FDA-Public Use
  Company Number: None

PATIENT
  Age: 73 Year
  Sex: Male
  Weight: 72 kg

DRUGS (1)
  1. BAMLANIVIMAB. [Suspect]
     Active Substance: BAMLANIVIMAB
     Indication: SARS-COV-2 TEST POSITIVE
     Route: 042
     Dates: start: 20210107, end: 20210107

REACTIONS (13)
  - Infusion related reaction [None]
  - Blood pressure systolic increased [None]
  - Vision blurred [None]
  - Hypotension [None]
  - Myocarditis [None]
  - Tachypnoea [None]
  - Hypersensitivity [None]
  - Hypertension [None]
  - Respiratory failure [None]
  - Dyspnoea [None]
  - Disease progression [None]
  - Pulmonary oedema [None]
  - Orthopnoea [None]

NARRATIVE: CASE EVENT DATE: 20210107
